FAERS Safety Report 10196957 (Version 1)
Quarter: 2014Q2

REPORT INFORMATION
  Report Type: Spontaneous
  Country: US (occurrence: US)
  Receive Date: 20140527
  Receipt Date: 20140527
  Transmission Date: 20141212
  Serious: Yes (Other)
  Sender: FDA-Public Use
  Company Number: US-PFIZER INC-2014141700

PATIENT
  Age: 81 Year
  Sex: Female
  Weight: 70.3 kg

DRUGS (2)
  1. PREMARIN [Suspect]
     Indication: VULVOVAGINAL DRYNESS
     Dosage: 0.5 G, 3X/WEEK
     Route: 067
  2. PREMARIN [Suspect]
     Indication: ATROPHIC VULVOVAGINITIS

REACTIONS (2)
  - Pneumonia [Not Recovered/Not Resolved]
  - Intentional product misuse [Unknown]
